FAERS Safety Report 6369259-8 (Version None)
Quarter: 2009Q3

REPORT INFORMATION
  Report Type: 
  Country: None (occurrence: None)
  Receive Date: 20090916
  Receipt Date: 20090908
  Transmission Date: 20100115
  Serious: Yes (Disabling)
  Sender: FDA-Public Use
  Company Number: ADR20452009

PATIENT
  Age: 53 Year
  Sex: Female

DRUGS (3)
  1. LAMOTRIGINE [Suspect]
     Indication: CONVULSION
     Dosage: 375MG
     Route: 048
  2. CLARITHROMYCIN [Concomitant]
  3. LANSOPRAZOLE [Concomitant]

REACTIONS (1)
  - HYPOGAMMAGLOBULINAEMIA [None]
